FAERS Safety Report 6370904-1 (Version None)
Quarter: 2009Q3

REPORT INFORMATION
  Report Type: 
  Country: None (occurrence: None)
  Receive Date: 20090923
  Receipt Date: 20070606
  Transmission Date: 20100115
  Serious: Yes (Hospitalization, Other)
  Sender: FDA-Public Use
  Company Number: US-ASTRAZENECA-2006UW23656

PATIENT
  Age: 15003 Day
  Sex: Female
  Weight: 113.4 kg

DRUGS (15)
  1. SEROQUEL [Suspect]
     Dosage: 25-100 MG
     Route: 048
     Dates: start: 20000418
  2. FLEXERIL [Concomitant]
  3. CELEBREX [Concomitant]
  4. PROVENTIL-HFA [Concomitant]
  5. LOPID [Concomitant]
  6. PREMARIN [Concomitant]
  7. CELEXA [Concomitant]
  8. ZYPREXA [Concomitant]
  9. PRILOSEC [Concomitant]
  10. ESTRADIOL [Concomitant]
  11. AVANDAMET [Concomitant]
  12. XENICAL [Concomitant]
  13. NEXIUM [Concomitant]
  14. VICODIN [Concomitant]
  15. HYDROCODONE [Concomitant]

REACTIONS (3)
  - DIABETES MELLITUS [None]
  - PANCREATITIS [None]
  - PANCREATITIS ACUTE [None]
